FAERS Safety Report 22283517 (Version 2)
Quarter: 2023Q2

REPORT INFORMATION
  Report Type: Report from Study
  Country: US (occurrence: US)
  Receive Date: 20230504
  Receipt Date: 20230519
  Transmission Date: 20230722
  Serious: Yes (Other)
  Sender: FDA-Public Use
  Company Number: US-TEVA-2023-US-2882019

PATIENT

DRUGS (4)
  1. DOCETAXEL [Suspect]
     Active Substance: DOCETAXEL
     Indication: Bladder transitional cell carcinoma
     Dosage: DISSOLVED IN 50ML OF SODIUM CHLORIDE INSTILLED FOR 90-120 MINUTES, 37.5 MG ONCE A WEEK
     Route: 043
  2. VALRUBICIN [Suspect]
     Active Substance: VALRUBICIN
     Indication: Bladder transitional cell carcinoma
     Dosage: IN 75 ML OF SODIUM CHLORIDE INSTILLED FOR 90 MINUTES, 800 MG ONCE A WEEK
     Route: 043
  3. SODIUM CHLORIDE [Concomitant]
     Active Substance: SODIUM CHLORIDE
     Indication: Bladder transitional cell carcinoma
     Dosage: INSTILLED FOR 90 MINUTES, 75 ML ONCE A WEEK
     Route: 043
  4. SODIUM CHLORIDE [Concomitant]
     Active Substance: SODIUM CHLORIDE
     Dosage: INSTILLED FOR 90-120 MINUTES, 50 ML ONCE A WEEK
     Route: 043

REACTIONS (1)
  - Chemical cystitis [Unknown]
